FAERS Safety Report 23686646 (Version 1)
Quarter: 2024Q1

REPORT INFORMATION
  Report Type: Spontaneous
  Country: US (occurrence: US)
  Receive Date: 20240329
  Receipt Date: 20240329
  Transmission Date: 20240409
  Serious: Yes (Hospitalization, Other)
  Sender: FDA-Public Use
  Company Number: US-UNITED THERAPEUTICS-UNT-2024-008558

PATIENT
  Age: 28 Year
  Sex: Female

DRUGS (3)
  1. REMODULIN [Suspect]
     Active Substance: TREPROSTINIL
     Indication: Pulmonary hypertension
     Dosage: UNK, CONTINUING
     Route: 058
  2. SILDENAFIL [Concomitant]
     Active Substance: SILDENAFIL
     Indication: Pulmonary hypertension
     Dosage: UNK
     Route: 065
  3. MACITENTAN [Concomitant]
     Active Substance: MACITENTAN
     Indication: Pulmonary hypertension
     Dosage: UNK
     Route: 065

REACTIONS (2)
  - Cardiac failure [Unknown]
  - Cardiogenic shock [Unknown]
